FAERS Safety Report 7374275-3 (Version None)
Quarter: 2011Q1

REPORT INFORMATION
  Report Type: 
  Country: None (occurrence: None)
  Receive Date: 20110317
  Receipt Date: 20110311
  Transmission Date: 20110831
  Serious: Yes (Hospitalization, Other)
  Sender: FDA-Public Use
  Company Number: TRP_07600_2011

PATIENT
  Sex: Female

DRUGS (2)
  1. RIBASPHERE [Suspect]
     Indication: HEPATITIS
  2. PEG-INTRON REDIPEN (NOT SPECIFIED) [Suspect]
     Indication: HEPATITIS

REACTIONS (4)
  - LABORATORY TEST ABNORMAL [None]
  - BLOOD POTASSIUM DECREASED [None]
  - VIRAL LOAD INCREASED [None]
  - OEDEMA PERIPHERAL [None]
